FAERS Safety Report 10161149 (Version 1)
Quarter: 2014Q2

REPORT INFORMATION
  Report Type: Spontaneous
  Country: US (occurrence: US)
  Receive Date: 20140508
  Receipt Date: 20140508
  Transmission Date: 20141212
  Serious: No
  Sender: FDA-Public Use
  Company Number: US-PFIZER INC-2014124742

PATIENT
  Age: 57 Year
  Sex: Female
  Weight: 109 kg

DRUGS (17)
  1. XELJANZ [Suspect]
     Indication: RHEUMATOID ARTHRITIS
     Dosage: 5 MG, 2X/DAY
     Route: 048
     Dates: start: 20140416
  2. HYDROCODONE [Concomitant]
     Dosage: UNK
  3. TYLENOL [Concomitant]
     Dosage: UNK
  4. ASPIRIN [Concomitant]
     Dosage: UNK
  5. CALCIUM [Concomitant]
     Dosage: UNK
  6. ADVIL [Concomitant]
     Dosage: UNK
  7. VITAMIN D [Concomitant]
     Dosage: UNK
  8. ALEVE [Concomitant]
     Dosage: UNK
  9. ACTOS [Concomitant]
     Dosage: UNK
  10. PLAQUENIL [Concomitant]
     Dosage: UNK
  11. GLIPIZIDE [Concomitant]
     Dosage: UNK
  12. ATENOLOL [Concomitant]
     Dosage: UNK
  13. LYRICA [Concomitant]
     Dosage: UNK
  14. VITAMIN B COMPLEX [Concomitant]
     Dosage: UNK
  15. PREDNISONE [Concomitant]
  16. ATORVASTATIN [Concomitant]
     Dosage: UNK
  17. BIOTIN [Concomitant]
     Dosage: UNK

REACTIONS (5)
  - Swelling face [Not Recovered/Not Resolved]
  - Feeling hot [Not Recovered/Not Resolved]
  - Erythema [Not Recovered/Not Resolved]
  - Gingival swelling [Not Recovered/Not Resolved]
  - Facial pain [Not Recovered/Not Resolved]
